FAERS Safety Report 14273425 (Version 1)
Quarter: 2017Q4

REPORT INFORMATION
  Report Type: Spontaneous
  Country: GB (occurrence: GB)
  Receive Date: 20171211
  Receipt Date: 20171211
  Transmission Date: 20180321
  Serious: Yes (Other)
  Sender: FDA-Public Use
  Company Number: GB-009507513-1712GBR003271

PATIENT
  Age: 59 Year
  Sex: Female
  Weight: 68 kg

DRUGS (25)
  1. PREDNISOLONE. [Concomitant]
     Active Substance: PREDNISOLONE
     Dosage: 6 DF, QD
     Dates: start: 20170904, end: 20170909
  2. ZOPICLONE [Concomitant]
     Active Substance: ZOPICLONE
     Dosage: AT NIGHT AS DIRECTED
     Dates: start: 20170920, end: 20171018
  3. ALENDRONATE SODIUM. [Suspect]
     Active Substance: ALENDRONATE SODIUM
     Route: 048
     Dates: start: 20160601
  4. DIETHYLAMINE SALICYLATE [Concomitant]
     Active Substance: DIETHYLAMINE SALICYLATE
     Dosage: 3 DF, QD
     Dates: start: 20170307
  5. VENTOLIN [Concomitant]
     Active Substance: ALBUTEROL SULFATE
     Dosage: ONE OR TWO PUFFS ; AS NECESSARY
     Dates: start: 20170307
  6. CLARITHROMYCIN. [Concomitant]
     Active Substance: CLARITHROMYCIN
     Dosage: 2 DF, QD
     Dates: start: 20170904, end: 20170911
  7. SERTRALINE HYDROCHLORIDE. [Concomitant]
     Active Substance: SERTRALINE HYDROCHLORIDE
     Dosage: 2 DF, QD
     Dates: start: 20170815
  8. LANSOPRAZOLE. [Concomitant]
     Active Substance: LANSOPRAZOLE
     Dosage: 2 DF, QD
     Dates: start: 20170815
  9. HYDROXOCOBALAMIN [Concomitant]
     Active Substance: HYDROXOCOBALAMIN
     Dosage: USE AS DIRECTED
     Dates: start: 20171025
  10. CODEINE PHOSPHATE [Concomitant]
     Active Substance: CODEINE PHOSPHATE
     Dosage: UP TO 2 FOUR TIMES A DAY ; AS NECESSARY
     Dates: start: 20170307
  11. TRAMADOL HYDROCHLORIDE. [Concomitant]
     Active Substance: TRAMADOL HYDROCHLORIDE
     Dosage: 2 DF, QD
     Dates: start: 20170810
  12. ALVERINE CITRATE [Concomitant]
     Active Substance: ALVERINE CITRATE
     Dosage: 4 DF, QD
     Dates: start: 20170815
  13. FOLIC ACID. [Concomitant]
     Active Substance: FOLIC ACID
     Dosage: 1 DF, QD
     Dates: start: 20170815
  14. AZATHIOPRINE. [Concomitant]
     Active Substance: AZATHIOPRINE
     Dosage: TWO IN THE MORNING AND ONE AT NIGHT
     Dates: start: 20170815
  15. ZEROBASE [Concomitant]
     Dosage: APPLY TO DRY AREAS ; AS NECESSARY
     Dates: start: 20170307
  16. SUMATRIPTAN. [Concomitant]
     Active Substance: SUMATRIPTAN
     Dosage: AS DIRECTED
     Dates: start: 20170307
  17. ADCAL (CALCIUM CARBONATE) [Concomitant]
     Active Substance: CALCIUM CARBONATE
     Dosage: 2 DF, QD
     Dates: start: 20170815
  18. FOSTAIR [Concomitant]
     Active Substance: BECLOMETHASONE\FORMOTEROL
     Dosage: PUFFS
     Dates: start: 20170307
  19. CETIRIZINE HYDROCHLORIDE. [Concomitant]
     Active Substance: CETIRIZINE HYDROCHLORIDE
     Dosage: 1 DF, QD
     Dates: start: 20170815
  20. QUININE [Concomitant]
     Active Substance: QUININE
     Dosage: AT TEATIME
     Dates: start: 20170815
  21. DIAZEPAM. [Concomitant]
     Active Substance: DIAZEPAM
     Dosage: UP TO THREE TIMES A DAY
     Dates: start: 20170920, end: 20170925
  22. CORSODYL [Concomitant]
     Active Substance: CHLORHEXIDINE GLUCONATE
     Dosage: 2 DF, QD
     Dates: start: 20170307
  23. DILTIAZEM. [Concomitant]
     Active Substance: DILTIAZEM
     Dosage: USE AS DIRECTED
     Dates: start: 20170307
  24. INCRUSE ELLIPTA [Concomitant]
     Active Substance: UMECLIDINIUM BROMIDE
     Dosage: 1 DF, QD
     Route: 055
     Dates: start: 20170307, end: 20171003
  25. ANORO ELLIPTA [Concomitant]
     Active Substance: UMECLIDINIUM BROMIDE\VILANTEROL TRIFENATATE
     Indication: CHRONIC OBSTRUCTIVE PULMONARY DISEASE
     Dosage: 1 DF, QD
     Route: 055
     Dates: start: 20171003

REACTIONS (1)
  - Osteonecrosis [Unknown]

NARRATIVE: CASE EVENT DATE: 20160620
